FAERS Safety Report 10748363 (Version 1)
Quarter: 2015Q1

REPORT INFORMATION
  Report Type: Report from Study
  Country: US (occurrence: US)
  Receive Date: 20150129
  Receipt Date: 20150129
  Transmission Date: 20150721
  Serious: Yes (Other)
  Sender: FDA-Public Use
  Company Number: US-AMGEN-USASP2014017735

PATIENT
  Age: 30 Year
  Sex: Female
  Weight: 53.06 kg

DRUGS (3)
  1. ENBREL [Suspect]
     Active Substance: ETANERCEPT
     Indication: RHEUMATOID ARTHRITIS
     Dosage: 50 MG, QWK
     Route: 065
     Dates: start: 20130603, end: 20131001
  2. PRENATAL VITAMINS                  /07499601/ [Concomitant]
     Dosage: UNK UNK, QD
     Route: 048
     Dates: start: 20131001
  3. DHA (DOCONEXENT) [Concomitant]
     Active Substance: DOCONEXENT
     Dosage: UNK UNK, QD
     Route: 048
     Dates: start: 20140101

REACTIONS (3)
  - Caesarean section [Unknown]
  - Anal fissure [Unknown]
  - Arthralgia [Unknown]

NARRATIVE: CASE EVENT DATE: 20141007
